FAERS Safety Report 6547444-X (Version None)
Quarter: 2010Q1

REPORT INFORMATION
  Report Type: 
  Country: None (occurrence: None)
  Receive Date: 20100119
  Receipt Date: 20100104
  Transmission Date: 20100710
  Serious: Yes (Death)
  Sender: FDA-Public Use
  Company Number: 2010VX000023

PATIENT
  Age: 44 Year
  Sex: Female

DRUGS (3)
  1. DIASTAT [Suspect]
     Indication: DRUG USE FOR UNKNOWN INDICATION
  2. CITALOPRAM HYDROBROMIDE [Suspect]
     Indication: DRUG USE FOR UNKNOWN INDICATION
  3. HYDROCODONE BITARTRATE AND ACETAMINOPHEN [Suspect]
     Indication: DRUG USE FOR UNKNOWN INDICATION

REACTIONS (9)
  - BASAL GANGLIA INFARCTION [None]
  - BLOOD GLUCOSE DECREASED [None]
  - CARDIAC ARREST [None]
  - COMPLETED SUICIDE [None]
  - CYANOSIS [None]
  - DRUG TOXICITY [None]
  - HYPOTENSION [None]
  - POSTURING [None]
  - UNRESPONSIVE TO STIMULI [None]
